FAERS Safety Report 9648251 (Version 1)
Quarter: 2013Q4

REPORT INFORMATION
  Report Type: Spontaneous
  Country: JP (occurrence: JP)
  Receive Date: 20131028
  Receipt Date: 20131028
  Transmission Date: 20140711
  Serious: Yes (Hospitalization)
  Sender: FDA-Public Use
  Company Number: US-ASTRAZENECA-2013SE78816

PATIENT
  Age: 38 Year
  Sex: Female

DRUGS (1)
  1. BLOPRESS TABLETS 12 [Suspect]
     Indication: ESSENTIAL HYPERTENSION
     Route: 048

REACTIONS (2)
  - Oligohydramnios [Recovering/Resolving]
  - Exposure during pregnancy [Recovered/Resolved]
